FAERS Safety Report 9513308 (Version 2)
Quarter: 2014Q2

REPORT INFORMATION
  Report Type: Report from Study
  Country: US (occurrence: US)
  Receive Date: 20130910
  Receipt Date: 20140401
  Transmission Date: 20141212
  Serious: Yes (Hospitalization)
  Sender: FDA-Public Use
  Company Number: US-US-EMD SERONO, INC.-7235714

PATIENT
  Age: 52 Year
  Sex: Female

DRUGS (4)
  1. REBIF [Suspect]
     Indication: MULTIPLE SCLEROSIS
     Route: 058
     Dates: start: 20110912, end: 20130303
  2. REBIF [Suspect]
     Route: 058
     Dates: start: 20130924
  3. FOLIC ACID [Concomitant]
     Indication: COAGULOPATHY
  4. SERTRALINE [Concomitant]
     Indication: DEPRESSION

REACTIONS (9)
  - Pericarditis [Recovering/Resolving]
  - Systemic lupus erythematosus [Recovering/Resolving]
  - Raynaud^s phenomenon [Recovering/Resolving]
  - Vertigo [Unknown]
  - Dehydration [Unknown]
  - Gait disturbance [Unknown]
  - Muscle spasms [Unknown]
  - Fatigue [Unknown]
  - Injection site rash [Unknown]
